FAERS Safety Report 20771805 (Version 1)
Quarter: 2022Q2

REPORT INFORMATION
  Report Type: Spontaneous
  Country: US (occurrence: US)
  Receive Date: 20220430
  Receipt Date: 20220430
  Transmission Date: 20220721
  Serious: Yes (Other)
  Sender: FDA-Public Use
  Company Number: CID000000000024202

PATIENT
  Age: 72 Year
  Sex: Female

DRUGS (1)
  1. LORAZEPAM [Suspect]
     Active Substance: LORAZEPAM
     Dosage: FORM STRENGTH:1MG
     Route: 065

REACTIONS (6)
  - Seizure [Unknown]
  - Lip swelling [Unknown]
  - Rash [Unknown]
  - Allergic reaction to excipient [Unknown]
  - Drug ineffective [Unknown]
  - Product use in unapproved indication [Unknown]
